FAERS Safety Report 7236976-7 (Version None)
Quarter: 2011Q1

REPORT INFORMATION
  Report Type: 
  Country: None (occurrence: None)
  Receive Date: 20110121
  Receipt Date: 20110113
  Transmission Date: 20110831
  Serious: Yes (Hospitalization, Other)
  Sender: FDA-Public Use
  Company Number: US-BIOGENIDEC-2011BI001727

PATIENT
  Age: 62 Year
  Sex: Female

DRUGS (2)
  1. AVONEX [Suspect]
     Route: 030
  2. AVONEX [Suspect]
     Indication: MULTIPLE SCLEROSIS
     Route: 030
     Dates: start: 19991001

REACTIONS (6)
  - PAIN IN EXTREMITY [None]
  - MUSCULAR WEAKNESS [None]
  - FALL [None]
  - MUSCULOSKELETAL STIFFNESS [None]
  - SPINAL DISORDER [None]
  - ASTHENIA [None]
